FAERS Safety Report 15712057 (Version 1)
Quarter: 2018Q4

REPORT INFORMATION
  Report Type: Spontaneous
  Country: CA (occurrence: CA)
  Receive Date: 20181212
  Receipt Date: 20181212
  Transmission Date: 20190205
  Serious: Yes (Other)
  Sender: FDA-Public Use
  Company Number: CA-ORION CORPORATION ORION PHARMA-TREX2018-3645

PATIENT
  Age: 91 Year
  Sex: Female

DRUGS (5)
  1. CIMZIA [Concomitant]
     Active Substance: CERTOLIZUMAB PEGOL
     Route: 065
     Dates: start: 2010
  2. PREDNISONE. [Concomitant]
     Active Substance: PREDNISONE
     Route: 065
     Dates: start: 2010
  3. ARAVA [Concomitant]
     Active Substance: LEFLUNOMIDE
     Route: 065
     Dates: start: 2010
  4. XELJANZ [Concomitant]
     Active Substance: TOFACITINIB CITRATE
     Route: 065
     Dates: start: 20170314
  5. METHOTREXATE (TRADE NAME UNKNOWN) [Suspect]
     Active Substance: METHOTREXATE
     Indication: RHEUMATOID ARTHRITIS
     Route: 048
     Dates: start: 2010, end: 2018

REACTIONS (11)
  - Iritis [Unknown]
  - Condition aggravated [Unknown]
  - Spinal column injury [Unknown]
  - Headache [Recovered/Resolved]
  - Mouth ulceration [Unknown]
  - Infection [Unknown]
  - Femoral neck fracture [Unknown]
  - Compression fracture [Unknown]
  - Osteonecrosis [Unknown]
  - Temporal arteritis [Unknown]
  - Peripheral sensory neuropathy [Unknown]

NARRATIVE: CASE EVENT DATE: 2014
